FAERS Safety Report 24455577 (Version 2)
Quarter: 2024Q4

REPORT INFORMATION
  Report Type: Report from Study
  Country: US (occurrence: US)
  Receive Date: 20241017
  Receipt Date: 20241018
  Transmission Date: 20250115
  Serious: No
  Sender: ROCHE
  Company Number: US-ROCHE-3487551

PATIENT
  Age: 60 Year
  Sex: Female
  Weight: 43.09 kg

DRUGS (1)
  1. RITUXIMAB [Suspect]
     Active Substance: RITUXIMAB
     Indication: Neuromyelitis optica spectrum disorder
     Dosage: 1000 MG Q 6 MONTHS,
     Route: 042
     Dates: start: 20160126

REACTIONS (1)
  - Alopecia [Unknown]
